FAERS Safety Report 16529467 (Version 1)
Quarter: 2019Q3

REPORT INFORMATION
  Report Type: Spontaneous
  Country: GB (occurrence: GB)
  Receive Date: 20190704
  Receipt Date: 20190704
  Transmission Date: 20191004
  Serious: Yes (Other)
  Sender: FDA-Public Use
  Company Number: GB-TEVA-2019-GB-1072710

PATIENT
  Age: 82 Year
  Sex: Female
  Weight: 56 kg

DRUGS (11)
  1. HYDROXOCOBALAMIN [Concomitant]
     Active Substance: HYDROXOCOBALAMIN
     Dosage: USE AS DIRECTED
     Dates: start: 20180327
  2. CO-AMILOZIDE [Suspect]
     Active Substance: AMILORIDE HYDROCHLORIDE\HYDROCHLOROTHIAZIDE
     Indication: JOINT SWELLING
     Dosage: 5MG/50MG
     Dates: start: 19921105, end: 20190607
  3. MAXIDEX [Concomitant]
     Active Substance: DEXAMETHASONE
     Dosage: REDUCING COURSE
     Dates: start: 20190516, end: 20190530
  4. LINAGLIPTIN [Concomitant]
     Active Substance: LINAGLIPTIN
     Dosage: 1DOSAGE FORMS PER DAY
     Dates: start: 20141125
  5. COCODAMOL [Concomitant]
     Active Substance: ACETAMINOPHEN\CODEINE PHOSPHATE
     Dosage: ONE OR TWO TO BE TAKEN FOUR TIMES A DAY IF NEEDED
     Dates: start: 20190528
  6. ACULAR [Concomitant]
     Active Substance: KETOROLAC TROMETHAMINE
     Dosage: OPTHALMOLOGY 4 WEEK COURSE
     Dates: start: 20190516, end: 20190530
  7. KETOROLAC [Concomitant]
     Active Substance: KETOROLAC TROMETHAMINE
     Dosage: 3GTT PER DAY
     Dates: start: 20190520
  8. SUKKARTO [Concomitant]
     Active Substance: METFORMIN HYDROCHLORIDE
     Dosage: TWO IN THE MORNING AND TWO AT NIGHT
     Dates: start: 20170602
  9. ACETYLSALICYLIC ACID [Concomitant]
     Active Substance: ASPIRIN
     Dosage: 1DOSAGE FORM PER DAY
     Dates: start: 20070205
  10. ATORVASTATIN [Concomitant]
     Active Substance: ATORVASTATIN
     Dosage: 1DOSAGE FORM PER DAY
     Dates: start: 20100409
  11. DEXAMETHASONE. [Concomitant]
     Active Substance: DEXAMETHASONE
     Dosage: INSTILL ONE DROP FOUR TIMES A DAY FOR 1 WEEK,4GTT PER DAY
     Dates: start: 20190520, end: 20190530

REACTIONS (1)
  - Squamous cell carcinoma [Recovered/Resolved]
